FAERS Safety Report 6087424-4 (Version None)
Quarter: 2009Q1

REPORT INFORMATION
  Report Type: 
  Country: None (occurrence: None)
  Receive Date: 20090223
  Receipt Date: 20090209
  Transmission Date: 20090719
  Serious: Yes (Hospitalization)
  Sender: FDA-Public Use
  Company Number: JP-MERCK-0901USA01430

PATIENT
  Age: 60 Year
  Sex: Female

DRUGS (8)
  1. PRINIVIL [Suspect]
     Indication: HYPERTENSION
     Route: 048
     Dates: start: 20060101, end: 20081208
  2. CIBENOL [Suspect]
     Indication: ARRHYTHMIA
     Route: 048
     Dates: start: 20060101, end: 20081202
  3. PEPCID [Suspect]
     Route: 065
     Dates: start: 20060101
  4. ALINAMIN F (FURSULTIAMINE HYDROCHLORIDE) [Concomitant]
     Route: 065
     Dates: start: 20060101
  5. NEUROVITAN [Concomitant]
     Route: 065
     Dates: start: 20060101
  6. BIOFERMIN [Concomitant]
     Route: 065
     Dates: start: 20060101
  7. PENTASA [Concomitant]
     Route: 065
     Dates: start: 20060101
  8. MUCOSTA [Concomitant]
     Route: 065
     Dates: start: 20060101

REACTIONS (1)
  - HYPOGLYCAEMIA [None]
